FAERS Safety Report 19277685 (Version 3)
Quarter: 2021Q2

REPORT INFORMATION
  Report Type: Other
  Country: US (occurrence: US)
  Receive Date: 20210520
  Receipt Date: 20210618
  Transmission Date: 20210717
  Serious: No
  Sender: FDA-Public Use
  Company Number: US-NEUROCRINE BIOSCIENCES INC.-2021NBI02353

PATIENT

DRUGS (4)
  1. INGREZZA [Suspect]
     Active Substance: VALBENAZINE
     Indication: TARDIVE DYSKINESIA
     Dosage: 80 MILLIGRAM, QD
     Route: 048
     Dates: start: 20210503
  2. INGREZZA [Suspect]
     Active Substance: VALBENAZINE
     Dosage: 40 MILLIGRAM, QD
     Route: 048
     Dates: start: 20210426, end: 20210502
  3. HALDOL [Concomitant]
     Active Substance: HALOPERIDOL
     Indication: DELIRIUM
     Dosage: 2.5 MILLIGRAM, QD
     Route: 065
     Dates: start: 202007
  4. HALDOL [Concomitant]
     Active Substance: HALOPERIDOL
     Dosage: 2 MILLIGRAM, QD
     Route: 065
     Dates: start: 20210527

REACTIONS (8)
  - Migraine [Recovered/Resolved]
  - Somnolence [Unknown]
  - Dry mouth [Unknown]
  - Tremor [Unknown]
  - Stress [Unknown]
  - Drug ineffective [Unknown]
  - Arthralgia [Unknown]
  - Fatigue [Unknown]

NARRATIVE: CASE EVENT DATE: 2021
